FAERS Safety Report 12170255 (Version 2)
Quarter: 2016Q2

REPORT INFORMATION
  Report Type: Spontaneous
  Country: US (occurrence: US)
  Receive Date: 20160311
  Receipt Date: 20160411
  Transmission Date: 20160815
  Serious: Yes (Other)
  Sender: FDA-Public Use
  Company Number: US-HOSPIRA-3200041

PATIENT
  Age: 59 Year
  Sex: Female
  Weight: 73 kg

DRUGS (15)
  1. PIPERACILLIN [Concomitant]
     Active Substance: PIPERACILLIN
     Indication: PYREXIA
     Route: 042
     Dates: start: 20120807
  2. CYTARABINE. [Suspect]
     Active Substance: CYTARABINE
     Indication: ACUTE MYELOID LEUKAEMIA
     Dosage: INDUCTION CONTINUOUS INFUSION ON DAY 1-7
     Route: 041
     Dates: start: 20120819, end: 20120825
  3. VORICONAZOLE. [Concomitant]
     Active Substance: VORICONAZOLE
     Indication: ANTIFUNGAL PROPHYLAXIS
     Route: 048
     Dates: start: 20120807, end: 20120809
  4. CYTARABINE. [Suspect]
     Active Substance: CYTARABINE
     Indication: ACUTE MYELOID LEUKAEMIA
     Route: 042
     Dates: start: 20120916, end: 20120916
  5. MEROPENEM. [Concomitant]
     Active Substance: MEROPENEM
     Indication: PRODUCT USED FOR UNKNOWN INDICATION
     Route: 042
     Dates: start: 20120915, end: 20120920
  6. VANCOMYCIN [Concomitant]
     Active Substance: VANCOMYCIN
     Indication: PYREXIA
     Route: 042
     Dates: start: 20120807
  7. CYTARABINE. [Suspect]
     Active Substance: CYTARABINE
     Indication: ACUTE MYELOID LEUKAEMIA
     Route: 042
     Dates: start: 20120912, end: 20120912
  8. ACYCLOVIR                          /00587301/ [Concomitant]
     Active Substance: ACYCLOVIR
     Indication: ANTIVIRAL PROPHYLAXIS
     Route: 048
     Dates: start: 20120807
  9. CYTARABINE. [Suspect]
     Active Substance: CYTARABINE
     Indication: ACUTE MYELOID LEUKAEMIA
     Route: 042
     Dates: start: 20120914, end: 20120914
  10. DAUNORUBICIN HYDROCHLORIDE. [Suspect]
     Active Substance: DAUNORUBICIN HYDROCHLORIDE
     Indication: ACUTE MYELOID LEUKAEMIA
     Dosage: INDUCTION FOR DAYS 1-3
     Route: 042
     Dates: start: 20120819, end: 20120821
  11. DAUNORUBICIN HYDROCHLORIDE. [Suspect]
     Active Substance: DAUNORUBICIN HYDROCHLORIDE
     Indication: ACUTE MYELOID LEUKAEMIA
     Route: 042
     Dates: start: 20120821, end: 20120829
  12. CEFEPIME HYDROCHLORIDE. [Concomitant]
     Active Substance: CEFEPIME HYDROCHLORIDE
     Indication: PRODUCT USED FOR UNKNOWN INDICATION
     Route: 042
     Dates: start: 20120915, end: 20120915
  13. INVESTIGATIONAL DRUG [Suspect]
     Active Substance: INVESTIGATIONAL PRODUCT
     Indication: ACUTE MYELOID LEUKAEMIA
     Route: 048
     Dates: start: 20120816, end: 20120908
  14. AMBIEN [Concomitant]
     Active Substance: ZOLPIDEM TARTRATE
     Indication: INSOMNIA
     Route: 048
     Dates: start: 20120613
  15. PIPERACILLIN [Concomitant]
     Active Substance: PIPERACILLIN
     Indication: PROPHYLAXIS
     Route: 042
     Dates: start: 20120807

REACTIONS (6)
  - VIth nerve paralysis [Recovering/Resolving]
  - Neurotoxicity [Recovered/Resolved with Sequelae]
  - Neutropenia [Unknown]
  - Mental status changes [Recovering/Resolving]
  - Pneumonia [Unknown]
  - Mutism [Recovering/Resolving]

NARRATIVE: CASE EVENT DATE: 20120915
